FAERS Safety Report 7378637-X (Version None)
Quarter: 2011Q1

REPORT INFORMATION
  Report Type: 
  Country: None (occurrence: None)
  Receive Date: 20110323
  Receipt Date: 20110323
  Transmission Date: 20110831
  Serious: Yes (Life-Threatening, Hospitalization)
  Sender: FDA-Public Use
  Company Number: None

PATIENT
  Sex: Male
  Weight: 105.2345 kg

DRUGS (1)
  1. ATENOLOL [Suspect]
     Indication: HYPERTENSION
     Dosage: 50 MG 1 X DAILY PO
     Route: 048
     Dates: start: 20090101, end: 20110312

REACTIONS (8)
  - FATIGUE [None]
  - COLD SWEAT [None]
  - ASTHENIA [None]
  - OXYGEN SATURATION DECREASED [None]
  - PERIPHERAL COLDNESS [None]
  - HEART RATE DECREASED [None]
  - DIZZINESS [None]
  - ATRIOVENTRICULAR BLOCK COMPLETE [None]
